FAERS Safety Report 8207716-X (Version None)
Quarter: 2012Q1

REPORT INFORMATION
  Report Type: 
  Country: None (occurrence: None)
  Receive Date: 20120314
  Receipt Date: 20120307
  Transmission Date: 20120608
  Serious: Yes (Other)
  Sender: FDA-Public Use
  Company Number: US-CELGENEUS-163-21880-11120551

PATIENT
  Sex: Female
  Weight: 102.29 kg

DRUGS (1)
  1. REVLIMID [Suspect]
     Indication: MULTIPLE MYELOMA
     Dosage: 25 MILLIGRAM
     Route: 048
     Dates: start: 20101230

REACTIONS (4)
  - CYSTITIS [None]
  - LOWER RESPIRATORY TRACT INFECTION [None]
  - ARRHYTHMIA [None]
  - PLATELET COUNT DECREASED [None]
